FAERS Safety Report 5011992-4 (Version None)
Quarter: 2006Q2

REPORT INFORMATION
  Report Type: 
  Country: None (occurrence: None)
  Receive Date: 20060524
  Receipt Date: 20060509
  Transmission Date: 20061013
  Serious: Yes (Hospitalization)
  Sender: FDA-Public Use
  Company Number: 2006000999

PATIENT
  Sex: Male

DRUGS (2)
  1. TARCEVA [Suspect]
     Dosage: 150 MG, ORAL
     Route: 048
  2. NON-STEROIDAL ANTI-INFLAMMATORY DRUG [Concomitant]

REACTIONS (1)
  - GASTRIC ULCER PERFORATION [None]
